FAERS Safety Report 6508487-5 (Version None)
Quarter: 2009Q4

REPORT INFORMATION
  Report Type: 
  Country: None (occurrence: None)
  Receive Date: 20091221
  Receipt Date: 20081112
  Transmission Date: 20100525
  Serious: No
  Sender: FDA-Public Use
  Company Number: US-ASTRAZENECA-2008UW25310

PATIENT
  Age: 64 Year
  Sex: Female
  Weight: 90.7 kg

DRUGS (7)
  1. CRESTOR [Suspect]
     Indication: HYPERCHOLESTEROLAEMIA
     Dosage: 5 MG
     Route: 048
     Dates: start: 20081108, end: 20081111
  2. CRESTOR [Suspect]
     Indication: C-REACTIVE PROTEIN INCREASED
     Dosage: 5 MG
     Route: 048
     Dates: start: 20081108, end: 20081111
  3. ESTERACE TRANSDERMAL PATCH [Suspect]
     Dates: start: 20081108
  4. PREMARIN [Suspect]
     Dates: start: 20081108
  5. ZESTRIL [Concomitant]
     Dosage: 5 MG
     Route: 048
  6. BUSPAR [Concomitant]
     Dosage: 15 MG
  7. VITAMINS [Concomitant]

REACTIONS (8)
  - BURNING SENSATION [None]
  - FLUSHING [None]
  - GASTROINTESTINAL DISORDER [None]
  - OEDEMA PERIPHERAL [None]
  - PAIN IN EXTREMITY [None]
  - PRURITUS [None]
  - RASH [None]
  - SWELLING FACE [None]
